FAERS Safety Report 7606791-0 (Version None)
Quarter: 2011Q3

REPORT INFORMATION
  Report Type: 
  Country: None (occurrence: None)
  Receive Date: 20110713
  Receipt Date: 20110621
  Transmission Date: 20111222
  Serious: Yes (Hospitalization)
  Sender: FDA-Public Use
  Company Number: US-GLAXOSMITHKLINE-A0844743A

PATIENT
  Age: 56 Year
  Sex: Male
  Weight: 120.5 kg

DRUGS (9)
  1. METFORMIN HCL [Concomitant]
  2. TRICOR [Concomitant]
  3. LOVAZA [Concomitant]
  4. LISINOPRIL [Concomitant]
  5. CLONAZEPAM [Concomitant]
  6. POTASSIUM CHLORIDE [Concomitant]
  7. FELODIPINE [Concomitant]
  8. AVANDIA [Suspect]
     Indication: TYPE 2 DIABETES MELLITUS
     Dosage: 8MG PER DAY
     Route: 048
     Dates: start: 20000101, end: 20070101
  9. FUROSEMIDE [Concomitant]

REACTIONS (3)
  - MYOCARDIAL INFARCTION [None]
  - CORONARY ARTERY DISEASE [None]
  - ATRIAL FIBRILLATION [None]
